FAERS Safety Report 5782448-6 (Version None)
Quarter: 2008Q2

REPORT INFORMATION
  Report Type: 
  Country: None (occurrence: None)
  Receive Date: 20080623
  Receipt Date: 20080612
  Transmission Date: 20081010
  Serious: Yes (Other)
  Sender: FDA-Public Use
  Company Number: PHHY2008FR10728

PATIENT

DRUGS (1)
  1. VALSARTAN AND HYDROCHLOROTHIAZIDE [Suspect]
     Indication: HYPERTENSION
     Dosage: 80/12.5 MG
     Dates: start: 20080101

REACTIONS (10)
  - BLOOD CALCIUM DECREASED [None]
  - BLOOD IRON DECREASED [None]
  - DEPRESSED MOOD [None]
  - FACIAL BONES FRACTURE [None]
  - FALL [None]
  - HAEMATOMA [None]
  - MALAISE [None]
  - NERVOUSNESS [None]
  - WHITE BLOOD CELL COUNT DECREASED [None]
  - WRIST FRACTURE [None]
